APPROVED DRUG PRODUCT: AMOXICILLIN AND CLAVULANATE POTASSIUM
Active Ingredient: AMOXICILLIN; CLAVULANATE POTASSIUM
Strength: 500MG;EQ 125MG BASE
Dosage Form/Route: TABLET;ORAL
Application: A205707 | Product #002 | TE Code: AB
Applicant: MICRO LABS LTD INDIA
Approved: Dec 30, 2016 | RLD: No | RS: No | Type: RX